FAERS Safety Report 17461608 (Version 1)
Quarter: 2020Q1

REPORT INFORMATION
  Report Type: Spontaneous
  Country: RU (occurrence: RU)
  Receive Date: 20200226
  Receipt Date: 20200226
  Transmission Date: 20200409
  Serious: Yes (Other)
  Sender: FDA-Public Use
  Company Number: None

PATIENT
  Age: 65 Year
  Sex: Female
  Weight: 90 kg

DRUGS (1)
  1. NORBACTIN [Suspect]
     Active Substance: NORFLOXACIN
     Indication: CYSTITIS
     Route: 048
     Dates: start: 20200220, end: 20200225

REACTIONS (2)
  - Pruritus [None]
  - Tendon disorder [None]

NARRATIVE: CASE EVENT DATE: 20200226
